FAERS Safety Report 8470754-6 (Version None)
Quarter: 2012Q2

REPORT INFORMATION
  Report Type: 
  Country: None (occurrence: None)
  Receive Date: 20120627
  Receipt Date: 20120618
  Transmission Date: 20120825
  Serious: Yes (Hospitalization)
  Sender: FDA-Public Use
  Company Number: US-BAYER-2012-061946

PATIENT
  Age: 24 Year
  Sex: Female
  Weight: 102.49 kg

DRUGS (11)
  1. SKELAXIN [Concomitant]
     Indication: FEELING OF RELAXATION
     Dosage: 800 MG, TID
     Dates: start: 20031204
  2. CELEBREX [Concomitant]
     Dosage: UNK
     Dates: start: 20040305
  3. CIPRO XR [Concomitant]
     Indication: URINARY TRACT INFECTION
     Dosage: 500 MG, DAILY
     Dates: start: 20031204
  4. CIPRO XR [Concomitant]
     Dosage: 500 MG, DAILY
     Dates: start: 20040115
  5. SKELAXIN [Concomitant]
     Dosage: 800 MG, TID
     Dates: start: 20040305
  6. PERCOCET [Concomitant]
     Indication: PAIN
  7. DIPROLENE [Concomitant]
     Dosage: 0.05 %, 30 GM TUBE, APPLY TO AFFECTED AREAS BID
     Route: 061
     Dates: start: 20031204
  8. YASMIN [Suspect]
  9. PHENAZOPYRIDINE HCL TAB [Concomitant]
     Indication: URINARY TRACT INFECTION
     Dosage: 200 MG, ONE TAB EVERY 8 HRS UNTIL GONE
     Route: 048
     Dates: start: 20040115
  10. ACETAMINOPHEN [Concomitant]
     Dosage: UNK
     Dates: start: 20040220
  11. MOTRIN [Concomitant]
     Dosage: UNK
     Dates: start: 20040220

REACTIONS (1)
  - DEEP VEIN THROMBOSIS [None]
